FAERS Safety Report 6230353-3 (Version None)
Quarter: 2009Q2

REPORT INFORMATION
  Report Type: 
  Country: None (occurrence: None)
  Receive Date: 20090611
  Receipt Date: 20090604
  Transmission Date: 20091009
  Serious: Yes (Death, Hospitalization)
  Sender: FDA-Public Use
  Company Number: GXKR2009JP06565

PATIENT
  Age: 10 Month
  Sex: Male

DRUGS (10)
  1. METHYLPREDNISOLONE 4MG TAB [Suspect]
     Indication: HAEMANGIOMA-THROMBOCYTOPENIA SYNDROME
     Dosage: PULSE THERAPY, UNKNOWN
  2. PREDNISOLONE [Concomitant]
  3. PLATELETS [Concomitant]
  4. NAFAMOSTAT MESILATE (NAFAMOSTAT MESILATE) [Concomitant]
  5. ETHANOLAMINE OLEATE (MONOETHANOLAMINE OLEATE) [Concomitant]
  6. RADIATION THERAPY (NO INGREDIENTS/SUBSTANCES) [Concomitant]
  7. IFN ALPHA (INTERFERON ALFA) [Concomitant]
  8. VINCRISTINE [Concomitant]
  9. DACTINOMYCIN [Concomitant]
  10. CYCLOPHOSPHAMIDE [Concomitant]

REACTIONS (4)
  - HAEMORRHAGE INTRACRANIAL [None]
  - PNEUMOCYSTIS JIROVECI PNEUMONIA [None]
  - RESPIRATORY FAILURE [None]
  - THROMBOCYTOPENIA [None]
